FAERS Safety Report 26076602 (Version 2)
Quarter: 2025Q4

REPORT INFORMATION
  Report Type: Report from Study
  Country: US (occurrence: US)
  Receive Date: 20251121
  Receipt Date: 20251125
  Transmission Date: 20260117
  Serious: No
  Sender: MALLINCKRODT
  Company Number: US-MALLINCKRODT-MNK202507059

PATIENT
  Sex: Male

DRUGS (1)
  1. CORTICOTROPIN [Suspect]
     Active Substance: CORTICOTROPIN
     Indication: Systemic lupus erythematosus
     Dosage: UNKNOWN

REACTIONS (7)
  - Muscle spasms [Unknown]
  - Fear of injection [Unknown]
  - Fluid retention [Unknown]
  - Injection site pain [Unknown]
  - Headache [Unknown]
  - Blood glucose increased [Unknown]
  - Insomnia [Unknown]
